FAERS Safety Report 9613333 (Version 2)
Quarter: 2014Q1

REPORT INFORMATION
  Report Type: Spontaneous
  Country: US (occurrence: US)
  Receive Date: 20131010
  Receipt Date: 20140107
  Transmission Date: 20141002
  Serious: Yes (Death, Hospitalization)
  Sender: FDA-Public Use
  Company Number: US-B.I. PHARMACEUTICALS,INC./RIDGEFIELD-2013-BI-31793BP

PATIENT
  Sex: Female
  Weight: 72.57 kg

DRUGS (19)
  1. PRADAXA [Suspect]
     Indication: ATRIAL FIBRILLATION
     Dosage: 75 MG
     Dates: start: 20120121, end: 20120302
  2. PRADAXA [Suspect]
     Indication: ANTIPHOSPHOLIPID SYNDROME
  3. PRADAXA [Suspect]
     Indication: DEEP VEIN THROMBOSIS
  4. ALDACTONE [Concomitant]
     Dosage: 50 MG
  5. COLACE [Concomitant]
     Dosage: 100 MG
  6. COREG [Concomitant]
     Dosage: 100 MG
  7. ISORDIL [Concomitant]
     Dosage: 20 MG
  8. NORVASC [Concomitant]
     Dosage: 10 MG
  9. VALIUM [Concomitant]
  10. CLONIDINE [Concomitant]
     Dosage: 0.2 MG
  11. FERROUS SULFATE [Concomitant]
     Dosage: 975 MG
  12. LANSOPRAZOLE [Concomitant]
     Dosage: 50 MG
  13. MORPHINE [Concomitant]
  14. PREDNISONE [Concomitant]
     Dosage: 10 MG
  15. SIMVASTATIN [Concomitant]
     Dosage: 40 MG
  16. PAMELOR [Concomitant]
     Dosage: 25 MG
  17. ASPIRIN [Concomitant]
     Dosage: 81 MG
  18. FAMOTIDINE [Concomitant]
     Dosage: 20 MG
  19. KEPPRA [Concomitant]
     Dosage: 1500 MG

REACTIONS (7)
  - Cerebral haemorrhage [Fatal]
  - Activated partial thromboplastin time prolonged [Unknown]
  - International normalised ratio increased [Unknown]
  - Prothrombin time prolonged [Unknown]
  - Haemoglobin decreased [Unknown]
  - Thrombocytopenia [Unknown]
  - Overdose [Unknown]
